FAERS Safety Report 9963365 (Version 1)
Quarter: 2014Q1

REPORT INFORMATION
  Report Type: Report from Study
  Country: US (occurrence: US)
  Receive Date: 20140305
  Receipt Date: 20140305
  Transmission Date: 20141002
  Serious: No
  Sender: FDA-Public Use
  Company Number: US-ABBVIE-13P-163-1119684-00

PATIENT
  Age: 24 Year
  Sex: Female

DRUGS (7)
  1. HUMIRA [Suspect]
     Indication: COLITIS ULCERATIVE
     Dates: start: 20130213
  2. MUCINEX D [Concomitant]
     Indication: HYPERSENSITIVITY
     Dosage: 1200/120 DAILY
  3. ZYRTEC [Concomitant]
     Indication: HYPERSENSITIVITY
     Dosage: 10MG DAILY
  4. APRISO [Concomitant]
     Indication: COLITIS
     Dosage: 1500 MG DAILY
  5. TOPROL [Concomitant]
     Indication: MITRAL VALVE PROLAPSE
     Dosage: GENERIC, 25MG DAILY
  6. JOLIVETTE-28 [Concomitant]
     Indication: CONTRACEPTION
     Dosage: DAILY
  7. ALLERGY SHOT [Concomitant]
     Indication: PRODUCT USED FOR UNKNOWN INDICATION

REACTIONS (2)
  - Injection site swelling [Not Recovered/Not Resolved]
  - Injection site discolouration [Not Recovered/Not Resolved]
